FAERS Safety Report 18230241 (Version 1)
Quarter: 2020Q3

REPORT INFORMATION
  Report Type: Other
  Country: FR (occurrence: FR)
  Receive Date: 20200904
  Receipt Date: 20200904
  Transmission Date: 20201103
  Serious: Yes (Hospitalization)
  Sender: FDA-Public Use
  Company Number: FR-CADILA HEALTHCARE LIMITED-FR-ZYDUS-055444

PATIENT

DRUGS (4)
  1. ESCITALOPRAM [Suspect]
     Active Substance: ESCITALOPRAM OXALATE
     Indication: DEPRESSIVE SYMPTOM
     Dosage: 10 MILLIGRAM
     Route: 048
     Dates: start: 202003
  2. PREGABALINE [Concomitant]
     Active Substance: PREGABALIN
     Indication: PRODUCT USED FOR UNKNOWN INDICATION
     Dosage: 150 MILLIGRAM
     Route: 065
  3. SKENAN [Concomitant]
     Active Substance: MORPHINE SULFATE
     Indication: PRODUCT USED FOR UNKNOWN INDICATION
     Dosage: 20 MILLIGRAM, QD
     Route: 065
  4. LOXAPAC [LOXAPINE SUCCINATE] [Suspect]
     Active Substance: LOXAPINE SUCCINATE
     Indication: MENTAL DISORDER
     Dosage: 25 MILLIGRAM, QD
     Route: 048
     Dates: start: 20200716

REACTIONS (1)
  - Reversible cerebral vasoconstriction syndrome [Recovered/Resolved]

NARRATIVE: CASE EVENT DATE: 20200803
